FAERS Safety Report 21514141 (Version 1)
Quarter: 2022Q4

REPORT INFORMATION
  Report Type: Spontaneous
  Country: FR (occurrence: FR)
  Receive Date: 20221027
  Receipt Date: 20221027
  Transmission Date: 20230113
  Serious: Yes (Life-Threatening, Hospitalization)
  Sender: FDA-Public Use
  Company Number: None

PATIENT
  Age: 58 Year
  Sex: Female
  Weight: 78 kg

DRUGS (12)
  1. CARBOPLATIN [Suspect]
     Active Substance: CARBOPLATIN
     Indication: Bronchial carcinoma
     Dosage: DURATION :1 DAY
     Dates: start: 20220816, end: 20220816
  2. ETOPOSIDE [Suspect]
     Active Substance: ETOPOSIDE
     Indication: Bronchial carcinoma
     Dosage: DURATION :1 DAY
     Dates: start: 20220816, end: 20220816
  3. TECENTRIQ [Suspect]
     Active Substance: ATEZOLIZUMAB
     Indication: Bronchial carcinoma
     Dosage: STRENGTH : 1200 MG
     Dates: start: 20220816, end: 20220816
  4. FASTURTEC [Suspect]
     Active Substance: RASBURICASE
     Indication: Hyperuricaemia
     Dosage: FASTURTEC 1.5 MG/ML POWDER AND SOLVENT FOR CONCENTRATE FOR SOLUTION FOR INFUSION, DURATION :1 DAY
     Dates: start: 20220816, end: 20220816
  5. METFORMIN [Concomitant]
     Active Substance: METFORMIN HYDROCHLORIDE
     Indication: Insulin-requiring type 2 diabetes mellitus
     Dosage: UNIT DOSE: 500 MG , FREQUENCY TIME : 1 DAY
  6. TROPATEPINE HYDROCHLORIDE [Concomitant]
     Active Substance: TROPATEPINE HYDROCHLORIDE
     Indication: Neuroleptic-induced deficit syndrome
     Dosage: UNIT DOSE: 10 MG , FREQUENCY TIME : 1 DAY
  7. BISOPROLOL FUMARATE\PERINDOPRIL ARGININE [Concomitant]
     Active Substance: BISOPROLOL FUMARATE\PERINDOPRIL ARGININE
     Indication: Aortic valve incompetence
     Dosage: COSIMPREL 5 MG/5 MG, UNIT DOSE: 1 DF , FREQUENCY TIME : 1 DAY
  8. CARBAMAZEPINE [Concomitant]
     Active Substance: CARBAMAZEPINE
     Indication: Schizophrenia
     Dosage: UNIT DOSE: 600 MG , FREQUENCY TIME : 1 DAY
  9. HALOPERIDOL DECANOATE [Concomitant]
     Active Substance: HALOPERIDOL DECANOATE
     Indication: Schizophrenia
     Dosage: UNIT DOSE: 1 DF , FREQUENCY TIME : 1 MONTH
  10. POTASSIUM CHLORIDE [Concomitant]
     Active Substance: POTASSIUM CHLORIDE
     Indication: Hypokalaemia
     Dosage: UNIT DOSE: 2 DF , FREQUENCY TIME : 1 DAY
  11. FUROSEMIDE [Concomitant]
     Active Substance: FUROSEMIDE
     Indication: Aortic valve incompetence
     Dosage: LASILIX LOW 20 MG, UNIT DOSE: 1 DF , FREQUENCY TIME : 1 DAY
  12. DAPAGLIFLOZIN [Concomitant]
     Active Substance: DAPAGLIFLOZIN
     Indication: Aortic valve incompetence
     Dosage: STRENGTH : 10 MG, UNIT DOSE: 1 DF , FREQUENCY TIME : 1 DAY

REACTIONS (1)
  - Anaphylactic shock [Recovered/Resolved]

NARRATIVE: CASE EVENT DATE: 20220816
